FAERS Safety Report 25523673 (Version 1)
Quarter: 2025Q3

REPORT INFORMATION
  Report Type: Spontaneous
  Country: EU (occurrence: EU)
  Receive Date: 20250707
  Receipt Date: 20250707
  Transmission Date: 20251021
  Serious: Yes (Hospitalization)
  Sender: MYLAN
  Company Number: None

PATIENT
  Age: 21 Year
  Sex: Male
  Weight: 65.5 kg

DRUGS (12)
  1. SERTRALINE [Suspect]
     Active Substance: SERTRALINE HYDROCHLORIDE
     Indication: Product used for unknown indication
     Dates: start: 20250401, end: 20250401
  2. SERTRALINE [Suspect]
     Active Substance: SERTRALINE HYDROCHLORIDE
     Route: 048
     Dates: start: 20250401, end: 20250401
  3. SERTRALINE [Suspect]
     Active Substance: SERTRALINE HYDROCHLORIDE
     Route: 048
     Dates: start: 20250401, end: 20250401
  4. SERTRALINE [Suspect]
     Active Substance: SERTRALINE HYDROCHLORIDE
     Dates: start: 20250401, end: 20250401
  5. LORAZEPAM [Suspect]
     Active Substance: LORAZEPAM
     Indication: Product used for unknown indication
     Dates: start: 20250401, end: 20250401
  6. LORAZEPAM [Suspect]
     Active Substance: LORAZEPAM
     Route: 048
     Dates: start: 20250401, end: 20250401
  7. LORAZEPAM [Suspect]
     Active Substance: LORAZEPAM
     Route: 048
     Dates: start: 20250401, end: 20250401
  8. LORAZEPAM [Suspect]
     Active Substance: LORAZEPAM
     Dates: start: 20250401, end: 20250401
  9. CYAMEMAZINE [Suspect]
     Active Substance: CYAMEMAZINE
     Indication: Product used for unknown indication
     Dates: start: 20250401, end: 20250401
  10. CYAMEMAZINE [Suspect]
     Active Substance: CYAMEMAZINE
     Route: 048
     Dates: start: 20250401, end: 20250401
  11. CYAMEMAZINE [Suspect]
     Active Substance: CYAMEMAZINE
     Route: 048
     Dates: start: 20250401, end: 20250401
  12. CYAMEMAZINE [Suspect]
     Active Substance: CYAMEMAZINE
     Dates: start: 20250401, end: 20250401

REACTIONS (3)
  - Poisoning deliberate [Recovered/Resolved]
  - Confusional state [Recovered/Resolved]
  - Intentional overdose [Unknown]

NARRATIVE: CASE EVENT DATE: 20250401
